FAERS Safety Report 6582547-5 (Version None)
Quarter: 2010Q1

REPORT INFORMATION
  Report Type: 
  Country: None (occurrence: None)
  Receive Date: 20100216
  Receipt Date: 20100208
  Transmission Date: 20100710
  Serious: Yes (Hospitalization)
  Sender: FDA-Public Use
  Company Number: JP-ASTRAZENECA-2010SE05994

PATIENT
  Age: 51 Year
  Sex: Male

DRUGS (1)
  1. OMEPRAL [Suspect]
     Dosage: UNKNOWN
     Route: 048
     Dates: start: 20100104, end: 20100122

REACTIONS (2)
  - JAUNDICE [None]
  - LIVER DISORDER [None]
